FAERS Safety Report 13195986 (Version 2)
Quarter: 2017Q2

REPORT INFORMATION
  Report Type: Report from Study
  Country: None (occurrence: US)
  Receive Date: 20170208
  Receipt Date: 20170421
  Transmission Date: 20170830
  Serious: Yes (Hospitalization)
  Sender: FDA-Public Use
  Company Number: US-ABBVIE-17K-163-1859803-00

PATIENT
  Age: 35 Year
  Sex: Male
  Weight: 61.29 kg

DRUGS (2)
  1. HUMIRA [Suspect]
     Active Substance: ADALIMUMAB
     Indication: CROHN^S DISEASE
     Route: 058
     Dates: start: 2015
  2. IRON [Concomitant]
     Active Substance: IRON
     Indication: ANAEMIA

REACTIONS (5)
  - Fatigue [Unknown]
  - Anal fistula [Not Recovered/Not Resolved]
  - Haematochezia [Unknown]
  - Vomiting [Recovering/Resolving]
  - Crohn^s disease [Recovered/Resolved]

NARRATIVE: CASE EVENT DATE: 2017
